FAERS Safety Report 11330501 (Version 1)
Quarter: 2015Q3

REPORT INFORMATION
  Report Type: Spontaneous
  Country: US (occurrence: US)
  Receive Date: 20150803
  Receipt Date: 20150803
  Transmission Date: 20151125
  Serious: No
  Sender: FDA-Public Use
  Company Number: US-TAKEDA-2015TUS000018

PATIENT
  Sex: Male

DRUGS (1)
  1. COLCRYS [Suspect]
     Active Substance: COLCHICINE
     Indication: PRODUCT USED FOR UNKNOWN INDICATION
     Dosage: 0.6 MG, UNK
     Route: 048
     Dates: start: 20141130

REACTIONS (1)
  - Skin discolouration [Not Recovered/Not Resolved]
